FAERS Safety Report 4680588-6 (Version None)
Quarter: 2005Q2

REPORT INFORMATION
  Report Type: 
  Country: None (occurrence: None)
  Receive Date: 20050531
  Receipt Date: 20050314
  Transmission Date: 20051028
  Serious: No
  Sender: FDA-Public Use
  Company Number: WAES 0501USA03189

PATIENT
  Age: 57 Year
  Sex: Male
  Weight: 89.3586 kg

DRUGS (2)
  1. ZETIA [Suspect]
     Dosage: 10 MG/AM/PO
     Route: 048
     Dates: start: 20041201, end: 20050118
  2. LIPITOR [Concomitant]

REACTIONS (4)
  - BLOOD CREATINE PHOSPHOKINASE INCREASED [None]
  - DIZZINESS [None]
  - LIVER FUNCTION TEST ABNORMAL [None]
  - MYALGIA [None]
